FAERS Safety Report 7234597-3 (Version None)
Quarter: 2011Q1

REPORT INFORMATION
  Report Type: 
  Country: None (occurrence: None)
  Receive Date: 20110120
  Receipt Date: 20110110
  Transmission Date: 20110831
  Serious: Yes (Hospitalization)
  Sender: FDA-Public Use
  Company Number: US-BIOGENIDEC-2009BI038349

PATIENT
  Age: 57 Year
  Sex: Female

DRUGS (1)
  1. AVONEX [Suspect]
     Indication: MULTIPLE SCLEROSIS
     Route: 030
     Dates: start: 20050307

REACTIONS (10)
  - LUMBAR VERTEBRAL FRACTURE [None]
  - DEMENTIA ALZHEIMER'S TYPE [None]
  - ARTHRITIS [None]
  - OSTEOPOROSIS [None]
  - URINARY TRACT INFECTION [None]
  - BASEDOW'S DISEASE [None]
  - FALL [None]
  - MEMORY IMPAIRMENT [None]
  - FATIGUE [None]
  - PERONEAL NERVE PALSY [None]
